FAERS Safety Report 20151899 (Version 4)
Quarter: 2022Q1

REPORT INFORMATION
  Report Type: Spontaneous
  Country: DE (occurrence: DE)
  Receive Date: 20211206
  Receipt Date: 20220207
  Transmission Date: 20220424
  Serious: Yes (Other)
  Sender: FDA-Public Use
  Company Number: DE-NOVARTISPH-NVSC2021DE273459

PATIENT
  Age: 51 Year
  Sex: Male

DRUGS (6)
  1. RITUXIMAB [Suspect]
     Active Substance: RITUXIMAB
     Indication: T-cell lymphoma
     Dosage: R-CHOEP-14 CHEMOTHERAPY, CYCLIC (7 CYCLES)
     Route: 065
  2. CYCLOPHOSPHAMIDE [Suspect]
     Active Substance: CYCLOPHOSPHAMIDE
     Indication: T-cell lymphoma
     Dosage: R-CHOEP-14 CHEMOTHERAPY, CYCLIC (7 CYCLES)
     Route: 065
  3. DOXORUBICIN [Suspect]
     Active Substance: DOXORUBICIN
     Indication: T-cell lymphoma
     Dosage: R-CHOEP-14 CHEMOTHERAPY, CYCLIC (7 CYCLES)
     Route: 065
  4. ETOPOSIDE [Suspect]
     Active Substance: ETOPOSIDE
     Indication: T-cell lymphoma
     Dosage: R-CHOEP-14 CHEMOTHERAPY, CYCLIC (7 CYCLES)
     Route: 065
  5. PREDNISONE [Suspect]
     Active Substance: PREDNISONE
     Indication: T-cell lymphoma
     Dosage: R-CHOEP-14 CHEMOTHERAPY, CYCLIC (7 CYCLES)
     Route: 065
  6. VINCRISTINE [Suspect]
     Active Substance: VINCRISTINE
     Indication: T-cell lymphoma
     Dosage: R-CHOEP-14 CHEMOTHERAPY, CYCLIC (7 CYCLES)
     Route: 065

REACTIONS (5)
  - Optic ischaemic neuropathy [Unknown]
  - Retinal artery occlusion [Unknown]
  - Disorder of orbit [Unknown]
  - Blindness [Unknown]
  - Toxicity to various agents [Unknown]
